FAERS Safety Report 4281963-4 (Version None)
Quarter: 2004Q1

REPORT INFORMATION
  Report Type: 
  Country: None (occurrence: None)
  Receive Date: 20040128
  Receipt Date: 20040120
  Transmission Date: 20041129
  Serious: Yes (Other)
  Sender: FDA-Public Use
  Company Number: STA-AE-04-003

PATIENT
  Age: 19 Year
  Sex: Female

DRUGS (1)
  1. VERAPAMIL [Suspect]
     Dosage: 0.025MG / DAY

REACTIONS (7)
  - CONDITION AGGRAVATED [None]
  - DIZZINESS [None]
  - HEADACHE [None]
  - HYPOGLYCAEMIA [None]
  - INSULINOMA [None]
  - NAUSEA [None]
  - VOMITING [None]
